FAERS Safety Report 5087294-7 (Version None)
Quarter: 2006Q3

REPORT INFORMATION
  Report Type: 
  Country: None (occurrence: None)
  Receive Date: 20060801
  Receipt Date: 20050809
  Transmission Date: 20061208
  Serious: Yes (Hospitalization)
  Sender: FDA-Public Use
  Company Number: OMPQ-PR-0508S-1141

PATIENT
  Age: 87 Year
  Sex: Female

DRUGS (5)
  1. OMNIPAQUE 140 [Suspect]
     Indication: ABDOMINAL PAIN
     Dosage: 125 ML, SINGLE DOSE, I.V.
     Route: 042
     Dates: start: 20050718, end: 20050718
  2. OMNIPAQUE 140 [Suspect]
     Indication: DIARRHOEA
     Dosage: 125 ML, SINGLE DOSE, I.V.
     Route: 042
     Dates: start: 20050718, end: 20050718
  3. OMNIPAQUE 140 [Suspect]
     Indication: NAUSEA
     Dosage: 125 ML, SINGLE DOSE, I.V.
     Route: 042
     Dates: start: 20050718, end: 20050718
  4. OMNIPAQUE 140 [Suspect]
     Indication: VOMITING
     Dosage: 125 ML, SINGLE DOSE, I.V.
     Route: 042
     Dates: start: 20050718, end: 20050718
  5. OMNIPAQUE 140 [Suspect]

REACTIONS (1)
  - HYPERSENSITIVITY [None]
